FAERS Safety Report 8084856-X (Version None)
Quarter: 2012Q1

REPORT INFORMATION
  Report Type: 
  Country: None (occurrence: None)
  Receive Date: 20120128
  Receipt Date: 20110323
  Transmission Date: 20120608
  Serious: No
  Sender: FDA-Public Use
  Company Number: US-ABBOTT-11P-163-0713775-00

PATIENT
  Age: 25 Year
  Sex: Male

DRUGS (2)
  1. OXYCODONE HCL [Concomitant]
     Indication: PRODUCT USED FOR UNKNOWN INDICATION
     Dosage: 20-30MG ONCE DAILY
  2. HUMIRA [Suspect]
     Indication: CROHN'S DISEASE

REACTIONS (4)
  - PAIN IN EXTREMITY [None]
  - DIARRHOEA [None]
  - INSOMNIA [None]
  - WEIGHT DECREASED [None]
